FAERS Safety Report 8490979-3 (Version None)
Quarter: 2012Q2

REPORT INFORMATION
  Report Type: 
  Country: None (occurrence: None)
  Receive Date: 20120625
  Receipt Date: 20120615
  Transmission Date: 20120825
  Serious: Yes (Hospitalization)
  Sender: FDA-Public Use
  Company Number: AEUSA201200330

PATIENT
  Age: 14 Year
  Sex: Female

DRUGS (3)
  1. GAMUNEX [Suspect]
     Indication: BRUTON'S AGAMMAGLOBULINAEMIA
     Dosage: 20 GM;1X;IV
     Route: 042
     Dates: start: 20120319, end: 20120319
  2. HIZENTRA [Suspect]
     Indication: BRUTON'S AGAMMAGLOBULINAEMIA
     Dosage: 40 ML;QW;SC
     Route: 058
     Dates: start: 20110602, end: 20120326
  3. KEPPRA [Concomitant]

REACTIONS (4)
  - AGGRESSION [None]
  - ANTI-GAD ANTIBODY POSITIVE [None]
  - MEMORY IMPAIRMENT [None]
  - ENCEPHALITIS [None]
